FAERS Safety Report 14196233 (Version 1)
Quarter: 2017Q4

REPORT INFORMATION
  Report Type: Spontaneous
  Country: FR (occurrence: FR)
  Receive Date: 20171116
  Receipt Date: 20171116
  Transmission Date: 20180321
  Serious: Yes (Other)
  Sender: FDA-Public Use
  Company Number: FR-MERCK KGAA-2034363

PATIENT
  Age: 53 Year
  Sex: Female

DRUGS (3)
  1. NOVOTHYROX [Suspect]
     Active Substance: LEVOTHYROXINE SODIUM
     Indication: AUTOIMMUNE THYROIDITIS
     Route: 048
     Dates: start: 20170403, end: 20170831
  2. LEVOTHYROX [Suspect]
     Active Substance: LEVOTHYROXINE
     Dates: start: 20170801
  3. NOVOTHYROX [Suspect]
     Active Substance: LEVOTHYROXINE SODIUM
     Route: 048
     Dates: start: 20170403, end: 20170831

REACTIONS (9)
  - Vertigo [Unknown]
  - Memory impairment [Unknown]
  - Insomnia [Recovered/Resolved]
  - Diarrhoea [Recovered/Resolved]
  - Irritability [Unknown]
  - Blood thyroid stimulating hormone [Unknown]
  - Haemorrhoids [Unknown]
  - Blood thyroid stimulating hormone increased [Unknown]
  - Nausea [Unknown]

NARRATIVE: CASE EVENT DATE: 201705
